FAERS Safety Report 4716679-0 (Version None)
Quarter: 2005Q3

REPORT INFORMATION
  Report Type: 
  Country: None (occurrence: None)
  Receive Date: 20050719
  Receipt Date: 20050707
  Transmission Date: 20060218
  Serious: Yes (Life-Threatening)
  Sender: FDA-Public Use
  Company Number: DE-BRISTOL-MYERS SQUIBB COMPANY-13038864

PATIENT
  Age: 72 Year
  Sex: Male

DRUGS (1)
  1. ERBITUX [Suspect]
     Indication: RECTOSIGMOID CANCER
     Dosage: 1ST INFUSION (400 MG).
     Dates: start: 20050510

REACTIONS (4)
  - ANAPHYLACTIC REACTION [None]
  - BLOOD PRESSURE DECREASED [None]
  - CHILLS [None]
  - TACHYCARDIA [None]
